FAERS Safety Report 6924357-2 (Version None)
Quarter: 2010Q3

REPORT INFORMATION
  Report Type: 
  Country: None (occurrence: None)
  Receive Date: 20100811
  Receipt Date: 20100811
  Transmission Date: 20110219
  Serious: Yes (Other)
  Sender: FDA-Public Use
  Company Number: None

PATIENT
  Sex: Female
  Weight: 66.2252 kg

DRUGS (2)
  1. PEN-VEE K [Suspect]
     Indication: PHARYNGITIS
     Dosage: 500MG PO TID
     Route: 048
     Dates: start: 20080211, end: 20080215
  2. NUVARING [Concomitant]

REACTIONS (1)
  - RASH [None]
